FAERS Safety Report 23371315 (Version 3)
Quarter: 2024Q1

REPORT INFORMATION
  Report Type: Report from Study
  Country: CN (occurrence: CN)
  Receive Date: 20240105
  Receipt Date: 20240131
  Transmission Date: 20240409
  Serious: No
  Sender: FDA-Public Use
  Company Number: CN-PFIZER INC-PV202400000010

PATIENT
  Age: 91 Year
  Sex: Female

DRUGS (39)
  1. NIRMATRELVIR\RITONAVIR [Suspect]
     Active Substance: NIRMATRELVIR\RITONAVIR
     Indication: COVID-19 treatment
     Dosage: [NIRMATRELVIR 300 MG]/[RITONAVIR 100 MG], 2X/DAY
     Route: 048
     Dates: start: 20220517, end: 20220521
  2. NIRMATRELVIR\RITONAVIR [Suspect]
     Active Substance: NIRMATRELVIR\RITONAVIR
     Dosage: [NIRMATRELVIR 300 MG]/[RITONAVIR 100 MG], 2X/DAY
     Route: 048
     Dates: start: 20220527, end: 20220601
  3. NIRMATRELVIR\RITONAVIR [Suspect]
     Active Substance: NIRMATRELVIR\RITONAVIR
     Dosage: [NIRMATRELVIR 300 MG]/[RITONAVIR 100 MG], 2X/DAY
     Route: 048
     Dates: start: 20220604, end: 20220609
  4. THYMALFASIN [Concomitant]
     Active Substance: THYMALFASIN
     Indication: Immunodeficiency
     Dosage: UNK
     Route: 058
     Dates: start: 20220517, end: 20220609
  5. AMBROXOL HYDROCHLORIDE [Concomitant]
     Active Substance: AMBROXOL HYDROCHLORIDE
     Indication: Productive cough
     Dosage: UNK
     Route: 042
     Dates: start: 20220517, end: 20220603
  6. AMBROXOL HYDROCHLORIDE [Concomitant]
     Active Substance: AMBROXOL HYDROCHLORIDE
     Dosage: UNK
     Route: 055
     Dates: start: 20220602, end: 20220603
  7. AMBROXOL HYDROCHLORIDE [Concomitant]
     Active Substance: AMBROXOL HYDROCHLORIDE
     Dosage: UNK
     Route: 042
     Dates: start: 20220603, end: 20220609
  8. ESOMEPRAZOLE SODIUM [Concomitant]
     Active Substance: ESOMEPRAZOLE SODIUM
     Indication: Prophylaxis
     Dosage: UNK
     Route: 050
     Dates: start: 20220517, end: 20220609
  9. ALBUMIN HUMAN [Concomitant]
     Active Substance: ALBUMIN HUMAN
     Indication: Supplementation therapy
     Dosage: UNK
     Route: 050
     Dates: start: 20220517, end: 20220609
  10. HUMAN IMMUNOGLOBULIN G [Concomitant]
     Active Substance: HUMAN IMMUNOGLOBULIN G
     Indication: Immunodeficiency
     Dosage: UNK, FOR INTRAVENOUS INJECTION
     Route: 050
     Dates: start: 20220517, end: 20220609
  11. COMPOUND AMINO ACID INJECTION (20AA) [Concomitant]
     Indication: Antiviral treatment
     Dosage: UNK
     Route: 045
     Dates: start: 20220517, end: 20220609
  12. HERBALS\MENTHOL [Concomitant]
     Active Substance: HERBALS\MENTHOL
     Indication: Antiviral treatment
     Dosage: UNK
     Route: 048
     Dates: start: 20220517, end: 20220606
  13. METHYLCOBALAMIN [Concomitant]
     Active Substance: METHYLCOBALAMIN
     Indication: Prophylaxis
     Dosage: UNK
     Route: 048
     Dates: start: 20220517, end: 20220609
  14. FOLIC ACID [Concomitant]
     Active Substance: FOLIC ACID
     Indication: Vitamin supplementation
     Dosage: UNK
     Route: 048
     Dates: start: 20220517, end: 20220609
  15. NADROPARIN CALCIUM [Concomitant]
     Active Substance: NADROPARIN CALCIUM
     Indication: Anticoagulant therapy
     Dosage: UNK
     Route: 058
     Dates: start: 20220517, end: 20220609
  16. MEROPENEM [Concomitant]
     Active Substance: MEROPENEM
     Indication: Anti-infective therapy
     Dosage: UNK
     Route: 042
     Dates: start: 20220517, end: 20220603
  17. VITAMIN B6 [Concomitant]
     Active Substance: PYRIDOXINE HYDROCHLORIDE
     Indication: Fluid replacement
     Dosage: UNK
     Route: 050
     Dates: start: 20220517, end: 20220526
  18. POTASSIUM CHLORIDE [Concomitant]
     Active Substance: POTASSIUM CHLORIDE
     Indication: Mineral supplementation
     Dosage: UNK
     Route: 050
     Dates: start: 20220517, end: 20220526
  19. POTASSIUM CHLORIDE [Concomitant]
     Active Substance: POTASSIUM CHLORIDE
     Dosage: UNK, NASOGASTRIC
     Dates: start: 20220519, end: 20220601
  20. POTASSIUM CHLORIDE [Concomitant]
     Active Substance: POTASSIUM CHLORIDE
     Dosage: UNK, NASOGASTRIC
     Dates: start: 20220604, end: 20220606
  21. METHYLPREDNISOLONE SODIUM SUCCINATE [Concomitant]
     Active Substance: METHYLPREDNISOLONE SODIUM SUCCINATE
     Indication: Antiinflammatory therapy
     Dosage: UNK
     Route: 042
     Dates: start: 20220517, end: 20220521
  22. TORSEMIDE [Concomitant]
     Active Substance: TORSEMIDE
     Indication: Polyuria
     Dosage: UNK
     Route: 042
     Dates: start: 20220517, end: 20220520
  23. COMPOUND AMINO ACID INJECTION (14AA) [Concomitant]
     Indication: Nutritional supplementation
     Dosage: UNK
     Route: 050
     Dates: start: 20220518, end: 20220524
  24. RECOMBINANT HUMAN THROMBOPOIETIN [Concomitant]
     Active Substance: RECOMBINANT HUMAN THROMBOPOIETIN
     Indication: Platelet disorder
     Dosage: UNK
     Route: 058
     Dates: start: 20220520, end: 20220529
  25. ERYTHROPOIETIN [Concomitant]
     Active Substance: ERYTHROPOIETIN
     Indication: Red blood cell count increased
     Dosage: UNK
     Route: 058
     Dates: start: 20220520, end: 20220609
  26. FLUCONAZOLE [Concomitant]
     Active Substance: FLUCONAZOLE
     Indication: Antifungal treatment
     Dosage: UNK
     Route: 048
     Dates: start: 20220521, end: 20220531
  27. INSULIN HUMAN [Concomitant]
     Active Substance: INSULIN HUMAN
     Indication: Blood glucose
     Dosage: UNK
     Route: 050
     Dates: start: 20220604, end: 20220609
  28. BISOPROLOL FUMARATE [Concomitant]
     Active Substance: BISOPROLOL FUMARATE
     Indication: Blood pressure management
     Dosage: UNK, NASOGASTRIC
     Dates: start: 20220605, end: 20220609
  29. NOREPINEPHRINE BITARTRATE [Concomitant]
     Active Substance: NOREPINEPHRINE BITARTRATE
     Indication: Blood pressure management
     Dosage: UNK
     Dates: start: 20220517, end: 20220517
  30. LIDOCAINE HYDROCHLORIDE [Concomitant]
     Active Substance: LIDOCAINE HYDROCHLORIDE
     Dosage: UNK, FOR EXTERNAL USE
     Route: 050
     Dates: start: 20220517, end: 20220517
  31. COMPOUND CHLORHEXIDINE GARGLE [Concomitant]
     Indication: Oral disorder
     Dosage: UNK
     Route: 050
     Dates: start: 20220517
  32. CALCIUM GLUCONATE [Concomitant]
     Active Substance: CALCIUM GLUCONATE
     Indication: Mineral supplementation
     Dosage: UNK
     Route: 050
     Dates: start: 20220518, end: 20220518
  33. DEXAMETHASONE [Concomitant]
     Active Substance: DEXAMETHASONE
     Indication: Hypothermia
     Dosage: UNK
     Route: 042
     Dates: start: 20220525, end: 20220525
  34. SODIUM POLYSTYRENE SULFONATE [Concomitant]
     Active Substance: SODIUM POLYSTYRENE SULFONATE
     Indication: Hypokalaemia
     Dosage: UNK, POWDER
     Route: 050
     Dates: start: 20220601
  35. VITAMIN C [Concomitant]
     Active Substance: ASCORBIC ACID
     Indication: Prophylaxis
     Dosage: UNK
     Route: 050
     Dates: start: 20220602, end: 20220602
  36. ESMOLOL HYDROCHLORIDE [Concomitant]
     Active Substance: ESMOLOL HYDROCHLORIDE
     Indication: Heart rate
     Dosage: UNK
     Route: 042
     Dates: start: 20220604, end: 20220604
  37. FUROSEMIDE [Concomitant]
     Active Substance: FUROSEMIDE
     Indication: Polyuria
     Dosage: UNK
     Route: 042
     Dates: start: 20220607, end: 20220607
  38. DYPHYLLINE [Concomitant]
     Active Substance: DYPHYLLINE
     Indication: Asthma prophylaxis
     Dosage: UNK
     Route: 042
     Dates: start: 20220609, end: 20220609
  39. CEFTRIAXONE SODIUM [Concomitant]
     Active Substance: CEFTRIAXONE SODIUM
     Indication: Antiinflammatory therapy
     Dosage: UNK
     Route: 050
     Dates: start: 20220609, end: 20220609

REACTIONS (1)
  - Overdose [Unknown]
